FAERS Safety Report 4723237-0 (Version None)
Quarter: 2005Q3

REPORT INFORMATION
  Report Type: 
  Country: None (occurrence: None)
  Receive Date: 20050719
  Receipt Date: 20040823
  Transmission Date: 20060218
  Serious: Yes (Hospitalization)
  Sender: FDA-Public Use
  Company Number: 203473

PATIENT
  Age: 38 Year
  Sex: Female
  Weight: 61.6892 kg

DRUGS (9)
  1. AVONEX [Suspect]
     Indication: MULTIPLE SCLEROSIS
     Dosage: 30 UG; QW; IM; SEE IMAGE
     Route: 030
     Dates: start: 19990901
  2. VITAMINS [Concomitant]
  3. LOPRESSOR [Concomitant]
  4. LISINOPRIL [Concomitant]
  5. ZYPREXA [Concomitant]
  6. NEURONTIN [Concomitant]
  7. BACLOFEN [Concomitant]
  8. KLONOPIN [Concomitant]
  9. INHALER (NOS) [Concomitant]

REACTIONS (8)
  - BLOOD PRESSURE INCREASED [None]
  - DEPRESSION [None]
  - GRAND MAL CONVULSION [None]
  - HEADACHE [None]
  - INFLUENZA LIKE ILLNESS [None]
  - INSOMNIA [None]
  - MULTIPLE SCLEROSIS RELAPSE [None]
  - MUSCLE SPASMS [None]
